FAERS Safety Report 5162280-7 (Version None)
Quarter: 2006Q4

REPORT INFORMATION
  Report Type: 
  Country: None (occurrence: None)
  Receive Date: 20060919
  Receipt Date: 20060726
  Transmission Date: 20070319
  Serious: No
  Sender: FDA-Public Use
  Company Number: 2006US001416

PATIENT
  Age: 85 Year
  Sex: Male

DRUGS (13)
  1. VESICARE [Suspect]
     Indication: PROSTATE EXAMINATION ABNORMAL
     Dosage: 5 MG, ORAL
     Route: 048
     Dates: start: 20060606
  2. TEVETEN [Concomitant]
  3. DYAZIDE [Concomitant]
  4. SYNTHROID [Concomitant]
  5. SAW PALMETTO (SERENOA REPENS) [Concomitant]
  6. VITAMIN B12 (HYDROXOCOBALAMIN) [Concomitant]
  7. VITAMIN B6 [Concomitant]
  8. GLUCOSAMINE W/CHONDROITIN SULFATE (GLUCOSAMINE, CHONDROITIN SULFATE) [Concomitant]
  9. FOLIC ACID [Concomitant]
  10. VITAMIN E (HERBAL OIL NOS) [Concomitant]
  11. MV (VITAMINS NOS) [Concomitant]
  12. ASCORBIC ACID [Concomitant]
  13. COENZYME Q10 [Concomitant]

REACTIONS (4)
  - CONSTIPATION [None]
  - DRY MOUTH [None]
  - PERSONALITY CHANGE [None]
  - PHOTOSENSITIVITY REACTION [None]
